FAERS Safety Report 8983897 (Version 1)
Quarter: 2012Q4

REPORT INFORMATION
  Report Type: Report from Study
  Country: CA (occurrence: CA)
  Receive Date: 20121224
  Receipt Date: 20121224
  Transmission Date: 20130627
  Serious: Yes (Other)
  Sender: FDA-Public Use
  Company Number: CA-JNJFOC-20121207856

PATIENT
  Age: 88 Year
  Sex: Female
  Weight: 72 kg

DRUGS (5)
  1. REMICADE [Suspect]
     Indication: CROHN^S DISEASE
     Route: 042
     Dates: start: 20100610
  2. TYLENOL 3 [Concomitant]
     Route: 065
  3. PANTOLOC [Concomitant]
     Route: 065
  4. ZOPICLONE [Concomitant]
     Route: 065
  5. IMURAN [Concomitant]
     Route: 065

REACTIONS (2)
  - Knee arthroplasty [Unknown]
  - Clostridium difficile infection [Not Recovered/Not Resolved]
